FAERS Safety Report 5200556-5 (Version None)
Quarter: 2006Q4

REPORT INFORMATION
  Report Type: 
  Country: None (occurrence: None)
  Receive Date: 20061016
  Receipt Date: 20051122
  Transmission Date: 20070319
  Serious: Yes (Hospitalization, Other)
  Sender: FDA-Public Use
  Company Number: 2005159187

PATIENT
  Age: 36 Year
  Sex: Female
  Weight: 81.6475 kg

DRUGS (4)
  1. NEURONTIN [Suspect]
     Indication: COMPLEX REGIONAL PAIN SYNDROME
     Dosage: (DAILY), ORAL
     Route: 048
  2. ALL OTHER THERAPEUTIC PRODUCTS (ALL OTHER THERAPEUTIC PRODUCTS) [Concomitant]
  3. OXYCONTIN [Concomitant]
  4. PERCOCET [Concomitant]

REACTIONS (2)
  - DRUG INEFFECTIVE [None]
  - SUICIDE ATTEMPT [None]
